FAERS Safety Report 9386891 (Version 1)
Quarter: 2013Q3

REPORT INFORMATION
  Report Type: Spontaneous
  Country: GB (occurrence: None)
  Receive Date: 20130702
  Receipt Date: 20130702
  Transmission Date: 20140515
  Serious: Yes (Other)
  Sender: FDA-Public Use
  Company Number: AUR-APL-2013-05352

PATIENT
  Age: 44 Year
  Sex: Female
  Weight: 98.87 kg

DRUGS (7)
  1. FLUCONAZOLE [Suspect]
     Indication: CANDIDA INFECTION
     Route: 048
     Dates: start: 20130609, end: 20130609
  2. ATENOLOL (ATENOLOL) [Concomitant]
  3. IRON (IRON) [Concomitant]
  4. LAMOTRIGINE (LAMOTRIGINE) [Concomitant]
  5. QUETIAPINE (QUETIAPINE) [Concomitant]
  6. SERTRALINE (SERTRALINE) (SERTRALINE) [Concomitant]
  7. VITAMIN C [Concomitant]

REACTIONS (1)
  - Skin disorder [None]
